FAERS Safety Report 4622429-9 (Version None)
Quarter: 2005Q1

REPORT INFORMATION
  Report Type: 
  Country: None (occurrence: None)
  Receive Date: 20050325
  Receipt Date: 20050325
  Transmission Date: 20050727
  Serious: Yes (Other)
  Sender: FDA-Public Use
  Company Number: None

PATIENT
  Age: 37 Year
  Sex: Male
  Weight: 88.4514 kg

DRUGS (1)
  1. THORAZINE [Suspect]
     Indication: SCHIZOPHRENIA
     Dosage: 200 MG 2 AT BEDTIME

REACTIONS (3)
  - ABDOMINAL PAIN UPPER [None]
  - BURNING SENSATION [None]
  - PHARMACEUTICAL PRODUCT COMPLAINT [None]
